FAERS Safety Report 4820019-6 (Version None)
Quarter: 2005Q4

REPORT INFORMATION
  Report Type: 
  Country: None (occurrence: None)
  Receive Date: 20051031
  Receipt Date: 20050815
  Transmission Date: 20060501
  Serious: No
  Sender: FDA-Public Use
  Company Number: 2005PV001148

PATIENT
  Age: 60 Year
  Sex: Female
  Weight: 76.2043 kg

DRUGS (9)
  1. SYMLIN [Suspect]
     Indication: DIABETES MELLITUS NON-INSULIN-DEPENDENT
     Dosage: 30 MCG;TID;SC
     Route: 058
     Dates: start: 20050812
  2. HUMALOG [Concomitant]
  3. LANTUS [Concomitant]
  4. GLUCOPHASE ^BRISTOL-MYERS SQUIBB^ [Concomitant]
  5. PREMARIN [Concomitant]
  6. SINGULAIR [Concomitant]
  7. LIPITOR [Concomitant]
  8. VITAMINS [Concomitant]
  9. ASPIRIN [Concomitant]

REACTIONS (3)
  - BLOOD GLUCOSE DECREASED [None]
  - DECREASED APPETITE [None]
  - EARLY SATIETY [None]
